FAERS Safety Report 5071018-3 (Version None)
Quarter: 2006Q3

REPORT INFORMATION
  Report Type: 
  Country: None (occurrence: None)
  Receive Date: 20060804
  Receipt Date: 20051221
  Transmission Date: 20061208
  Serious: No
  Sender: FDA-Public Use
  Company Number: US-GLAXOSMITHKLINE-A0586581A

PATIENT
  Age: 44 Year
  Sex: Female

DRUGS (1)
  1. NICORETTE (MINT) [Suspect]
     Dates: start: 20051111

REACTIONS (6)
  - DEPRESSION [None]
  - GINGIVAL ULCERATION [None]
  - GLOSSODYNIA [None]
  - MOUTH ULCERATION [None]
  - OEDEMA PERIPHERAL [None]
  - TONGUE ULCERATION [None]
